FAERS Safety Report 5045470-3 (Version None)
Quarter: 2006Q3

REPORT INFORMATION
  Report Type: 
  Country: None (occurrence: None)
  Receive Date: 20060707
  Receipt Date: 20051003
  Transmission Date: 20061208
  Serious: Yes (Other)
  Sender: FDA-Public Use
  Company Number: 200512823JP

PATIENT
  Age: 30 Year
  Sex: Male
  Weight: 56 kg

DRUGS (3)
  1. LANTUS [Suspect]
     Indication: DIABETES MELLITUS INSULIN-DEPENDENT
     Route: 058
     Dates: start: 20040122
  2. OPTIPEN (INSULIN PUMP) [Suspect]
  3. HUMALOG [Concomitant]
     Indication: DIABETES MELLITUS INSULIN-DEPENDENT
     Dosage: DOSE: 22-24 UNITS
     Route: 058
     Dates: start: 20011204

REACTIONS (3)
  - CONDITION AGGRAVATED [None]
  - DIABETIC RETINOPATHY [None]
  - VITREOUS HAEMORRHAGE [None]
